FAERS Safety Report 22198598 (Version 1)
Quarter: 2023Q2

REPORT INFORMATION
  Report Type: Spontaneous
  Country: RO (occurrence: RO)
  Receive Date: 20230411
  Receipt Date: 20230411
  Transmission Date: 20230721
  Serious: Yes (Other)
  Sender: FDA-Public Use
  Company Number: RO-BRISTOL-MYERS SQUIBB COMPANY-2023-036069

PATIENT
  Age: 82 Year
  Sex: Male

DRUGS (5)
  1. OPDIVO [Suspect]
     Active Substance: NIVOLUMAB
     Indication: Malignant melanoma
     Dosage: DOSE: 4, FREQ: EVERY 14 DAYS
     Dates: start: 202206
  2. OPDIVO [Suspect]
     Active Substance: NIVOLUMAB
     Dosage: DOSE: 4, FREQ: EVERY 14 DAYS
  3. YERVOY [Suspect]
     Active Substance: IPILIMUMAB
     Indication: Malignant melanoma
  4. DABRAFENIB\TRAMETINIB [Concomitant]
     Active Substance: DABRAFENIB\TRAMETINIB
     Indication: Product used for unknown indication
  5. TT [Concomitant]
     Indication: Product used for unknown indication

REACTIONS (6)
  - Visual impairment [Unknown]
  - Prostatic adenoma [Unknown]
  - Gastritis [Unknown]
  - Pneumonia [Unknown]
  - Malignant neoplasm progression [Unknown]
  - Pericarditis [Unknown]

NARRATIVE: CASE EVENT DATE: 20210501
